FAERS Safety Report 22164915 (Version 2)
Quarter: 2023Q2

REPORT INFORMATION
  Report Type: Spontaneous
  Country: US (occurrence: US)
  Receive Date: 20230403
  Receipt Date: 20230526
  Transmission Date: 20230722
  Serious: Yes (Hospitalization)
  Sender: FDA-Public Use
  Company Number: US-CATALYST PHARMACEUTICALS, INC-US-CATA-23-00171

PATIENT
  Age: 67 Year
  Sex: Male

DRUGS (12)
  1. FIRDAPSE [Suspect]
     Active Substance: AMIFAMPRIDINE PHOSPHATE
     Indication: Myasthenic syndrome
     Dosage: 10 MG THREE TIMES DAILY AND INCREASE BY HALF A TABLET EVERY FOUR DAYS UNTIL REACHING 60 MG DAILY
     Route: 048
     Dates: start: 20220803, end: 20220901
  2. FIRDAPSE [Suspect]
     Active Substance: AMIFAMPRIDINE PHOSPHATE
     Dosage: 2 DOSAGE FORM, TID
     Route: 048
     Dates: start: 20220901
  3. ALBUTEROL [Concomitant]
     Active Substance: ALBUTEROL
     Indication: Product used for unknown indication
     Dosage: AS NEEDED
     Route: 065
  4. ELIQUIS [Concomitant]
     Active Substance: APIXABAN
     Indication: Product used for unknown indication
     Dosage: 5 MG TWICE DAILY
     Route: 065
  5. FISH OIL [Concomitant]
     Active Substance: FISH OIL
     Indication: Product used for unknown indication
     Dosage: 1000 MG DAILY
     Route: 065
  6. FOLIC ACID [Concomitant]
     Active Substance: FOLIC ACID
     Indication: Product used for unknown indication
     Dosage: 1 MG DAILY
     Route: 065
  7. LEVOTHYROXINE [Concomitant]
     Active Substance: LEVOTHYROXINE
     Indication: Product used for unknown indication
     Dosage: 50 MCG EVERY MORNING
     Route: 065
  8. LINZESS [Concomitant]
     Active Substance: LINACLOTIDE
     Indication: Product used for unknown indication
     Dosage: 72 MCG DAILY
     Route: 065
  9. MIDODRINE [Concomitant]
     Active Substance: MIDODRINE
     Indication: Product used for unknown indication
     Dosage: 2.5 MG THREE TIMES A DAY
     Route: 065
  10. PANTOPRAZOLE [Concomitant]
     Active Substance: PANTOPRAZOLE
     Indication: Product used for unknown indication
     Dosage: 40 MG DAILY
     Route: 065
  11. PLAVIX [Concomitant]
     Active Substance: CLOPIDOGREL BISULFATE
     Indication: Product used for unknown indication
     Dosage: 75 MG ONCE DAILY
     Route: 065
  12. CYANOCOBALAMIN [Concomitant]
     Active Substance: CYANOCOBALAMIN
     Indication: Product used for unknown indication
     Dosage: 100 MCG DAILY
     Route: 065

REACTIONS (1)
  - Hip fracture [Recovering/Resolving]

NARRATIVE: CASE EVENT DATE: 20230314
